FAERS Safety Report 19246668 (Version 1)
Quarter: 2021Q2

REPORT INFORMATION
  Report Type: Spontaneous
  Country: US (occurrence: US)
  Receive Date: 20210512
  Receipt Date: 20210512
  Transmission Date: 20210717
  Serious: Yes (Other)
  Sender: FDA-Public Use
  Company Number: None

PATIENT
  Age: 35 Year
  Sex: Female
  Weight: 63 kg

DRUGS (1)
  1. ICY HOT MEDICATED NO MESS APPLICATOR [Suspect]
     Active Substance: MENTHOL
     Indication: PAIN
     Dosage: ?          QUANTITY:1 LIQUID;?
     Route: 061
     Dates: start: 20210312, end: 20210312

REACTIONS (3)
  - Application site inflammation [None]
  - Application site erythema [None]
  - Application site burn [None]

NARRATIVE: CASE EVENT DATE: 20210312
